FAERS Safety Report 4413509-1 (Version None)
Quarter: 2004Q3

REPORT INFORMATION
  Report Type: 
  Country: None (occurrence: None)
  Receive Date: 20040728
  Receipt Date: 20040712
  Transmission Date: 20050211
  Serious: Yes (Other)
  Sender: FDA-Public Use
  Company Number: A03200402266

PATIENT
  Age: 59 Year
  Sex: Male
  Weight: 62.5964 kg

DRUGS (4)
  1. PLAVIX [Suspect]
     Indication: MYOCARDIAL INFARCTION
     Dosage: 75 MG QD - ORAL
     Route: 048
     Dates: start: 20040301
  2. VITAMINS NOS [Concomitant]
  3. METOPROLOL [Concomitant]
  4. ASPIRIN [Concomitant]

REACTIONS (1)
  - BLOOD PRESSURE DECREASED [None]
